FAERS Safety Report 17464417 (Version 1)
Quarter: 2020Q1

REPORT INFORMATION
  Report Type: Spontaneous
  Country: ES (occurrence: ES)
  Receive Date: 20200226
  Receipt Date: 20200226
  Transmission Date: 20200409
  Serious: Yes (Hospitalization)
  Sender: FDA-Public Use
  Company Number: ES-MYLANLABS-2020M1020072

PATIENT
  Age: 78 Year
  Sex: Male

DRUGS (2)
  1. CLOPIDOGREL [Suspect]
     Active Substance: CLOPIDOGREL BISULFATE
     Indication: PRODUCT USED FOR UNKNOWN INDICATION
     Dosage: 75 MG DIA
     Route: 048
     Dates: start: 20190725, end: 20190801
  2. ADIRO [Interacting]
     Active Substance: ASPIRIN
     Indication: PRODUCT USED FOR UNKNOWN INDICATION
     Dosage: 1-0-0
     Route: 048
     Dates: start: 20190725, end: 20190801

REACTIONS (2)
  - Drug interaction [Unknown]
  - Haematuria [Recovered/Resolved]

NARRATIVE: CASE EVENT DATE: 20190801
